FAERS Safety Report 22660265 (Version 1)
Quarter: 2023Q2

REPORT INFORMATION
  Report Type: Report from Study
  Country: IN (occurrence: None)
  Receive Date: 20230630
  Receipt Date: 20230630
  Transmission Date: 20230722
  Serious: Yes (Hospitalization, Congenital Anomaly)
  Sender: FDA-Public Use
  Company Number: IN-Eisai Medical Research-EC-2023-143402

PATIENT

DRUGS (5)
  1. PERAMPANEL [Suspect]
     Active Substance: PERAMPANEL
     Indication: Foetal exposure during pregnancy
     Dosage: FREQUENCY UNKNOWN
     Route: 064
  2. CARBAMAZEPINE [Suspect]
     Active Substance: CARBAMAZEPINE
     Indication: Foetal exposure during pregnancy
     Dosage: UNKNOWN DOSE AND FREQUENCY
     Route: 064
     Dates: end: 2020
  3. CLOBAZAM [Suspect]
     Active Substance: CLOBAZAM
     Indication: Foetal exposure during pregnancy
     Dosage: UNKNOWN DOSE AND FREQUENCY
     Route: 064
     Dates: end: 2020
  4. LAMOTRIGINE [Suspect]
     Active Substance: LAMOTRIGINE
     Indication: Foetal exposure during pregnancy
     Dosage: UNKNOWN DOSE AND FREQUENCY
     Route: 064
     Dates: end: 2020
  5. TOPIRAMATE [Suspect]
     Active Substance: TOPIRAMATE
     Indication: Foetal exposure during pregnancy
     Dosage: UNKNOWN DOSE AND FREQUENCY
     Route: 064
     Dates: end: 2020

REACTIONS (2)
  - Tracheo-oesophageal fistula [Unknown]
  - Foetal exposure during pregnancy [Unknown]

NARRATIVE: CASE EVENT DATE: 20200101
